FAERS Safety Report 5114007-2 (Version None)
Quarter: 2006Q3

REPORT INFORMATION
  Report Type: 
  Country: None (occurrence: None)
  Receive Date: 20060925
  Receipt Date: 20060914
  Transmission Date: 20061208
  Serious: Yes (Other)
  Sender: FDA-Public Use
  Company Number: 2006PK01877

PATIENT
  Sex: Female
  Weight: 69 kg

DRUGS (1)
  1. SYMBICORT [Suspect]
     Indication: BRONCHITIS ACUTE
     Dosage: 160/4.5 UG
     Route: 055
     Dates: start: 20060913

REACTIONS (7)
  - BRONCHOSPASM PARADOXICAL [None]
  - COUGH [None]
  - DYSGEUSIA [None]
  - DYSPNOEA [None]
  - FEAR [None]
  - URINARY INCONTINENCE [None]
  - VOMITING [None]
